FAERS Safety Report 8325089 (Version 2)
Quarter: 2014Q1

REPORT INFORMATION
  Report Type: Spontaneous
  Country: US (occurrence: US)
  Receive Date: 20120106
  Receipt Date: 20140120
  Transmission Date: 20141002
  Serious: Yes (Hospitalization, Other)
  Sender: FDA-Public Use
  Company Number: US-BAYER-2012-000039

PATIENT
  Age: 19 Year
  Sex: Female

DRUGS (6)
  1. YAZ [Suspect]
     Dosage: UNK
     Dates: start: 200809, end: 200906
  2. ZOLOFT [Concomitant]
     Dosage: 50 MG, ONE DAILY
     Route: 048
  3. IBUPROFEN [Concomitant]
  4. OXYCODONE [Concomitant]
  5. MOXIFLOXACIN [Concomitant]
  6. EXTRA STRENGTH TYLENOL [Concomitant]

REACTIONS (5)
  - Gallbladder disorder [None]
  - Cholecystitis acute [None]
  - Injury [None]
  - Emotional distress [None]
  - Pain [None]
